FAERS Safety Report 8942119 (Version 4)
Quarter: 2013Q1

REPORT INFORMATION
  Report Type: Spontaneous
  Country: RU (occurrence: RU)
  Receive Date: 20121130
  Receipt Date: 20130123
  Transmission Date: 20140127
  Serious: Yes (Hospitalization)
  Sender: FDA-Public Use
  Company Number: RU-GLAXOSMITHKLINE-B0847409A

PATIENT
  Sex: Male

DRUGS (1)
  1. VOTRIENT [Suspect]
     Indication: RENAL CANCER
     Dosage: 800MG PER DAY
     Route: 048
     Dates: start: 20111004, end: 20121107

REACTIONS (14)
  - Intestinal haemorrhage [Recovered/Resolved]
  - Loss of consciousness [Unknown]
  - Haematochezia [Unknown]
  - Bronchial carcinoma [Unknown]
  - Haemorrhagic anaemia [Unknown]
  - Cerebrovascular accident [Unknown]
  - Hypoventilation [Unknown]
  - Metastases to central nervous system [Unknown]
  - Metastases to lung [Unknown]
  - Metastases to kidney [Unknown]
  - Dysarthria [Unknown]
  - Bronchospasm [Unknown]
  - Atrophy [Unknown]
  - Dysplasia [Unknown]
